FAERS Safety Report 7497505-6 (Version None)
Quarter: 2011Q2

REPORT INFORMATION
  Report Type: 
  Country: None (occurrence: None)
  Receive Date: 20110523
  Receipt Date: 20110511
  Transmission Date: 20111010
  Serious: Yes (Other)
  Sender: FDA-Public Use
  Company Number: US-UCBSA-029057

PATIENT
  Sex: Female
  Weight: 99.79 kg

DRUGS (12)
  1. BRUPOPRION XL [Concomitant]
  2. CLEMASTINE FUMARATE [Concomitant]
  3. CIMZIA [Suspect]
     Indication: CROHN'S DISEASE
     Route: 058
     Dates: start: 20110301
  4. CLOBETASOL PROPIONATE [Concomitant]
  5. SEROQUEL [Concomitant]
  6. VITAMINS [Concomitant]
  7. PREVACID [Concomitant]
  8. KLONPIN [Concomitant]
  9. HYDROCONDONE [Concomitant]
  10. LEXAPRO [Concomitant]
  11. VALACYCLOVIR [Concomitant]
  12. VITAMIN B-12 [Concomitant]

REACTIONS (3)
  - URTICARIA [None]
  - RASH GENERALISED [None]
  - FEELING ABNORMAL [None]
